FAERS Safety Report 10035681 (Version 1)
Quarter: 2014Q1

REPORT INFORMATION
  Report Type: Spontaneous
  Country: FR (occurrence: None)
  Receive Date: 20140321
  Receipt Date: 20140321
  Transmission Date: 20141002
  Serious: Yes (Hospitalization)
  Sender: FDA-Public Use
  Company Number: SYM-2014-18680

PATIENT
  Age: 44 Year
  Sex: Male

DRUGS (13)
  1. FLAGYL [Suspect]
     Indication: PRODUCT USED FOR UNKNOWN INDICATION
     Route: 048
     Dates: start: 20140118, end: 20140127
  2. TOPALGIC [Suspect]
     Indication: PRODUCT USED FOR UNKNOWN INDICATION
     Dosage: AS NEEDED, INTAVENOUS (NOT OTHERWISE SPECIFIED)
     Route: 042
     Dates: start: 20140118, end: 20140127
  3. PARACETAMOL (PARACETAMOL) [Suspect]
     Indication: PRODUCT USED FOR UNKNOWN INDICATION
     Dosage: AS NEEDED, INTRAVENOUS (NOT OTHERWISE SPECIFIED)
     Route: 042
     Dates: start: 20140118, end: 20140127
  4. CEFTRIAXONE [Suspect]
     Indication: PRODUCT USED FOR UNKNOWN INDICATION
     Dosage: 1 GM, 1 IN 1 D, INTRAVENOUS (NOT OTHERWISE SPECIFIED)
     Route: 042
     Dates: start: 20140118
  5. PERINUTRIFLEX [Suspect]
     Indication: PRODUCT USED FOR UNKNOWN INDICATION
     Route: 041
     Dates: start: 20140122, end: 20140126
  6. SODIUM CHLORIDE [Suspect]
     Indication: PRODUCT USED FOR UNKNOWN INDICATION
     Route: 041
     Dates: start: 20140118, end: 20140127
  7. SPASFON [Suspect]
     Indication: PRODUCT USED FOR UNKNOWN INDICATION
     Dosage: 6 DOSAGE FORMS, 3 IN 1 D, INTRAVENOUS (NOT OTHERWISE SPECIFIED)
     Route: 042
     Dates: start: 20140119, end: 20140127
  8. INEXIUM [Suspect]
     Indication: PRODUCT USED FOR UNKNOWN INDICATION
     Dates: start: 20140122, end: 20140127
  9. DEBRIDAT [Suspect]
     Indication: PRODUCT USED FOR UNKNOWN INDICATION
     Dosage: 6 DOSAGE FORMS, 3 IN 1 D, INTRAVENOS (NOT OTHERWISE SPECIFIED)
     Route: 042
     Dates: start: 20140123, end: 20140127
  10. GLUCIDION (OSMOTAN) (GLUCOSE, POTASSIUM CHLORIDE, SODIUM CHLORIDE) [Concomitant]
  11. ZOPHREN (ONDANSETRON HYDROCHLORIDE) (ONDANSETON HYDROCHLORIDE) [Concomitant]
  12. LOVENOX (ENOXAPARIN SODIUM) (ENOXAPARIN SODIUM) [Concomitant]
  13. LASILIX [Suspect]

REACTIONS (5)
  - Lymphangitis [None]
  - Thrombophlebitis superficial [None]
  - Livedo reticularis [None]
  - Peripheral coldness [None]
  - Hot flush [None]
